FAERS Safety Report 11186807 (Version 6)
Quarter: 2015Q3

REPORT INFORMATION
  Report Type: Report from Study
  Country: US (occurrence: US)
  Receive Date: 20150614
  Receipt Date: 20150826
  Transmission Date: 20151125
  Serious: No
  Sender: FDA-Public Use
  Company Number: US-AMGEN-USASP2015056210

PATIENT
  Age: 56 Year
  Sex: Female
  Weight: 97.52 kg

DRUGS (4)
  1. ENBREL [Suspect]
     Active Substance: ETANERCEPT
     Dosage: 50 MG, QWK
     Route: 058
     Dates: start: 20150805, end: 20150812
  2. ENBREL [Suspect]
     Active Substance: ETANERCEPT
     Dosage: 50 MG, QWK
     Route: 058
     Dates: start: 20150819
  3. ENBREL [Suspect]
     Active Substance: ETANERCEPT
     Indication: RHEUMATOID ARTHRITIS
     Dosage: 50 MG, QWK
     Route: 058
     Dates: start: 20150522, end: 20150729
  4. PLAQUENIL [Concomitant]
     Active Substance: HYDROXYCHLOROQUINE SULFATE
     Dosage: UNK
     Dates: start: 201506

REACTIONS (13)
  - Arthralgia [Recovered/Resolved]
  - Injection site rash [Not Recovered/Not Resolved]
  - Injection site reaction [Not Recovered/Not Resolved]
  - Device issue [Unknown]
  - Injection site erythema [Not Recovered/Not Resolved]
  - Injection site pruritus [Not Recovered/Not Resolved]
  - Head discomfort [Unknown]
  - Dry skin [Recovered/Resolved]
  - Dizziness [Recovered/Resolved]
  - Injection site extravasation [Unknown]
  - Sinusitis [Unknown]
  - Injection site bruising [Not Recovered/Not Resolved]
  - Animal scratch [Recovered/Resolved]

NARRATIVE: CASE EVENT DATE: 2015
